FAERS Safety Report 9404731 (Version 1)
Quarter: 2013Q3

REPORT INFORMATION
  Report Type: Spontaneous
  Country: AU (occurrence: AU)
  Receive Date: 20130717
  Receipt Date: 20130717
  Transmission Date: 20140515
  Serious: Yes (Life-Threatening, Other)
  Sender: FDA-Public Use
  Company Number: PHHY2013AU075307

PATIENT
  Sex: Male

DRUGS (1)
  1. EXFORGE HCT [Suspect]
     Dosage: 1 DF (320MG VALS/ 10MG AMLO/ 25MG HYDR), UNK

REACTIONS (6)
  - Apparent death [Unknown]
  - Feeling abnormal [Unknown]
  - Anger [Unknown]
  - Malaise [Unknown]
  - Back pain [Unknown]
  - Muscle spasms [Unknown]
